FAERS Safety Report 21830136 (Version 2)
Quarter: 2023Q1

REPORT INFORMATION
  Report Type: Spontaneous
  Country: RU (occurrence: RU)
  Receive Date: 20230106
  Receipt Date: 20230220
  Transmission Date: 20230418
  Serious: Yes (Hospitalization)
  Sender: FDA-Public Use
  Company Number: RU-drreddys-LIT/RUS/22/0159301

PATIENT
  Sex: Female

DRUGS (4)
  1. NIMESULIDE [Suspect]
     Active Substance: NIMESULIDE
     Indication: Product used for unknown indication
     Dosage: 1 TABLET PER DAY
  2. OMEPRAZOLE [Suspect]
     Active Substance: OMEPRAZOLE
     Indication: Product used for unknown indication
     Dosage: 20 MG IN THE MORNING
  3. METHOTREXATE [Suspect]
     Active Substance: METHOTREXATE
     Indication: Product used for unknown indication
  4. NIMESULIDE [Suspect]
     Active Substance: NIMESULIDE
     Indication: Product used for unknown indication
     Dosage: 100 MG 1-2 PER DAY

REACTIONS (5)
  - Rheumatoid arthritis [Unknown]
  - Osteoarthritis [Unknown]
  - Arteriosclerosis [Unknown]
  - Self-medication [Unknown]
  - Drug ineffective [Unknown]
